FAERS Safety Report 6759636-5 (Version None)
Quarter: 2010Q2

REPORT INFORMATION
  Report Type: 
  Country: None (occurrence: None)
  Receive Date: 20100608
  Receipt Date: 20100525
  Transmission Date: 20101027
  Serious: No
  Sender: FDA-Public Use
  Company Number: US-BIOGENIDEC-2010BI010171

PATIENT
  Sex: Male

DRUGS (1)
  1. TYSABRI [Suspect]
     Indication: MULTIPLE SCLEROSIS
     Route: 042
     Dates: start: 20090604

REACTIONS (10)
  - ANXIETY [None]
  - ASTHENIA [None]
  - BONE DENSITY DECREASED [None]
  - DIZZINESS [None]
  - FATIGUE [None]
  - INSOMNIA [None]
  - MUSCULAR WEAKNESS [None]
  - MUSCULOSKELETAL DISORDER [None]
  - NAUSEA [None]
  - STRESS [None]
